FAERS Safety Report 25231446 (Version 3)
Quarter: 2025Q2

REPORT INFORMATION
  Report Type: Spontaneous
  Country: US (occurrence: US)
  Receive Date: 20250423
  Receipt Date: 20250514
  Transmission Date: 20250716
  Serious: No
  Sender: SANOFI AVENTIS
  Company Number: US-SA-2025SA118779

PATIENT
  Sex: Male
  Weight: 58.64 kg

DRUGS (9)
  1. DUPIXENT [Suspect]
     Active Substance: DUPILUMAB
     Indication: Sinus polyp
     Dosage: 300 MG, QOW
     Route: 058
  2. DUPIXENT [Suspect]
     Active Substance: DUPILUMAB
     Indication: Chronic rhinosinusitis with nasal polyps
  3. ATORVASTATIN CALCIUM [Concomitant]
     Active Substance: ATORVASTATIN CALCIUM
  4. FLUTICASONE PROPIONATE [Concomitant]
     Active Substance: FLUTICASONE PROPIONATE
  5. KENALOG [Concomitant]
     Active Substance: TRIAMCINOLONE ACETONIDE
  6. MAGNESIUM [Concomitant]
     Active Substance: MAGNESIUM
  7. VITAMIN D3 [Concomitant]
     Active Substance: CHOLECALCIFEROL
  8. CLOPIDOGREL BISULFATE [Concomitant]
     Active Substance: CLOPIDOGREL BISULFATE
  9. CARVEDILOL [Concomitant]
     Active Substance: CARVEDILOL

REACTIONS (10)
  - Oropharyngeal discomfort [Unknown]
  - Wheezing [Unknown]
  - Secretion discharge [Unknown]
  - Rhinorrhoea [Unknown]
  - Paraesthesia oral [Unknown]
  - Cough [Unknown]
  - Throat tightness [Unknown]
  - Dysgeusia [Unknown]
  - Nasal congestion [Unknown]
  - Drug hypersensitivity [Unknown]
